FAERS Safety Report 7729447-2 (Version None)
Quarter: 2011Q3

REPORT INFORMATION
  Report Type: 
  Country: None (occurrence: None)
  Receive Date: 20110906
  Receipt Date: 20110831
  Transmission Date: 20111222
  Serious: Yes (Life-Threatening, Hospitalization, Other)
  Sender: FDA-Public Use
  Company Number: JP-SANOFI-AVENTIS-2011SA051438

PATIENT
  Age: 46 Year
  Sex: Male

DRUGS (4)
  1. LEUCOVORIN CALCIUM [Suspect]
     Indication: RECTAL CANCER METASTATIC
     Route: 041
     Dates: start: 20110601, end: 20110706
  2. AVASTIN [Suspect]
     Indication: RECTAL CANCER METASTATIC
     Route: 041
     Dates: start: 20110601, end: 20110706
  3. EFUDEX [Suspect]
     Indication: RECTAL CANCER METASTATIC
     Route: 041
     Dates: start: 20110601, end: 20110706
  4. OXALIPLATIN [Suspect]
     Indication: RECTAL CANCER METASTATIC
     Route: 041
     Dates: start: 20110601, end: 20110706

REACTIONS (6)
  - ANAEMIA [None]
  - PURPURA FULMINANS [None]
  - DISSEMINATED INTRAVASCULAR COAGULATION [None]
  - STAPHYLOCOCCAL INFECTION [None]
  - NECROTISING FASCIITIS [None]
  - SEPTIC SHOCK [None]
